FAERS Safety Report 6415875-4 (Version None)
Quarter: 2009Q4

REPORT INFORMATION
  Report Type: 
  Country: None (occurrence: None)
  Receive Date: 20091022
  Receipt Date: 20091008
  Transmission Date: 20100525
  Serious: Yes (Other)
  Sender: FDA-Public Use
  Company Number: 8053246

PATIENT
  Age: 69 Year
  Sex: Female
  Weight: 75 kg

DRUGS (3)
  1. CERTOLIZUMAB PEGOL [Suspect]
     Indication: CROHN'S DISEASE
     Dosage: 400 MG 1/2W; SC
     Route: 058
     Dates: start: 20040812, end: 20040908
  2. CERTOLIZUMAB PEGOL [Suspect]
     Indication: CROHN'S DISEASE
     Dosage: 400 MG /M; SC
     Route: 058
     Dates: start: 20041006, end: 20050209
  3. CERTOLIZUMAB PEGOL [Suspect]
     Indication: CROHN'S DISEASE
     Dosage: 400 MG /M; SC
     Route: 058
     Dates: start: 20050223, end: 20090910

REACTIONS (3)
  - CELLULITIS ORBITAL [None]
  - CROHN'S DISEASE [None]
  - DISEASE COMPLICATION [None]
